FAERS Safety Report 7674362-6 (Version None)
Quarter: 2011Q3

REPORT INFORMATION
  Report Type: 
  Country: None (occurrence: None)
  Receive Date: 20110810
  Receipt Date: 20110805
  Transmission Date: 20111222
  Serious: Yes (Death)
  Sender: FDA-Public Use
  Company Number: JP-PFIZER INC-2011167593

PATIENT
  Age: 53 Year
  Sex: Female

DRUGS (10)
  1. DEXTROMETHORPHAN HYDROBROMIDE [Concomitant]
     Indication: COUGH
     Dosage: 45 MG/DAY
     Route: 048
  2. METALCAPTASE [Concomitant]
     Indication: COLLAGEN DISORDER
     Dosage: 200 MG/DAY
     Route: 048
  3. REVATIO [Suspect]
     Indication: PULMONARY HYPERTENSION
     Dosage: 60 MG/DAY
     Route: 048
     Dates: end: 20110613
  4. WARFARIN [Concomitant]
     Dosage: 2 MG/DAY
     Route: 048
  5. TRACLEER [Concomitant]
     Dosage: 2.5 MG/DAY
     Route: 048
  6. PREDNISOLONE [Concomitant]
     Indication: COLLAGEN DISORDER
     Dosage: 5 MG/DAY
     Route: 048
  7. THEO-DUR [Concomitant]
     Indication: COUGH
     Dosage: 400 MG/DAY
     Route: 048
  8. ZITHROMAX [Suspect]
     Indication: PYREXIA
     Dosage: UNK
     Route: 048
     Dates: start: 20110706, end: 20110706
  9. TADALAFIL [Concomitant]
     Indication: PULMONARY HYPERTENSION
     Dosage: 40 MG/DAY
     Route: 048
  10. MUCODYNE [Concomitant]
     Dosage: 1000 MG/DAY
     Route: 048

REACTIONS (4)
  - FEELING COLD [None]
  - SUDDEN DEATH [None]
  - NAUSEA [None]
  - VOMITING [None]
